FAERS Safety Report 10029275 (Version 1)
Quarter: 2014Q1

REPORT INFORMATION
  Report Type: Report from Study
  Country: US (occurrence: US)
  Receive Date: 20140321
  Receipt Date: 20140321
  Transmission Date: 20141002
  Serious: Yes (Hospitalization)
  Sender: FDA-Public Use
  Company Number: PHHO2014US003868

PATIENT
  Age: 22 Year
  Sex: Female
  Weight: 71.4 kg

DRUGS (2)
  1. LBH589 [Suspect]
     Indication: LYMPHOMA
     Dosage: 20 MG, QD
     Route: 048
     Dates: start: 20140131
  2. AFINITOR [Suspect]
     Indication: LYMPHOMA
     Dosage: 5 MG, QD
     Route: 048
     Dates: start: 20140131

REACTIONS (3)
  - Hypoxia [Recovering/Resolving]
  - Stomatitis [Recovering/Resolving]
  - Pneumocystis jirovecii pneumonia [Recovering/Resolving]
